FAERS Safety Report 23501714 (Version 2)
Quarter: 2024Q4

REPORT INFORMATION
  Report Type: Report from Study
  Country: US (occurrence: US)
  Receive Date: 20240208
  Receipt Date: 20241004
  Transmission Date: 20250115
  Serious: Yes (Other)
  Sender: REGENERON
  Company Number: US-REGENERON PHARMACEUTICALS, INC.-2024-025775

PATIENT
  Sex: Female

DRUGS (2)
  1. CEMIPLIMAB [Interacting]
     Active Substance: CEMIPLIMAB
     Indication: Squamous cell carcinoma of skin
     Dosage: 350 MG, Q3W
     Route: 042
     Dates: start: 20230817
  2. JUVEDERM [Interacting]
     Active Substance: HYALURONIC ACID
     Indication: Product used for unknown indication
     Dosage: UNK
     Dates: start: 20240729

REACTIONS (15)
  - Pain [Unknown]
  - Swelling [Unknown]
  - Inflammation [Unknown]
  - Malaise [Unknown]
  - Injection site mass [Unknown]
  - Injection site swelling [Unknown]
  - Injection site oedema [Unknown]
  - Drug interaction [Unknown]
  - Skin atrophy [Unknown]
  - Skin degenerative disorder [Unknown]
  - Arthritis [Unknown]
  - Bone pain [Unknown]
  - Fatigue [Unknown]
  - Chronic obstructive pulmonary disease [Unknown]
  - Amnesia [Unknown]

NARRATIVE: CASE EVENT DATE: 20240101
